FAERS Safety Report 5026767-X (Version None)
Quarter: 2006Q2

REPORT INFORMATION
  Report Type: 
  Country: None (occurrence: None)
  Receive Date: 20060615
  Receipt Date: 20060607
  Transmission Date: 20061013
  Serious: Yes (Other)
  Sender: FDA-Public Use
  Company Number: ES-JNJFOC-20060601895

PATIENT
  Age: 35 Year
  Sex: Female

DRUGS (2)
  1. DURAGESIC-100 [Suspect]
     Indication: PAIN
     Route: 062
  2. MORPHINE SULFATE [Suspect]
     Indication: BREAKTHROUGH PAIN
     Dosage: 5-10 MG, ORAL
     Route: 048

REACTIONS (2)
  - DRUG EXPOSURE DURING PREGNANCY [None]
  - PREMATURE LABOUR [None]
